FAERS Safety Report 17617155 (Version 2)
Quarter: 2020Q3

REPORT INFORMATION
  Report Type: Spontaneous
  Country: US (occurrence: US)
  Receive Date: 20200402
  Receipt Date: 20200904
  Transmission Date: 20201102
  Serious: Yes (Other)
  Sender: FDA-Public Use
  Company Number: US-SA-2020SA078342

PATIENT

DRUGS (2)
  1. TAXOTERE [Suspect]
     Active Substance: DOCETAXEL
     Indication: BREAST CANCER METASTATIC
     Dosage: 120 UNK, Q3W
     Route: 065
     Dates: start: 20121106, end: 20121106
  2. TAXOTERE [Suspect]
     Active Substance: DOCETAXEL
     Dosage: 120 UNK, Q3W
     Route: 065
     Dates: start: 20130110, end: 20130110

REACTIONS (1)
  - Alopecia [Not Recovered/Not Resolved]

NARRATIVE: CASE EVENT DATE: 201211
